FAERS Safety Report 26011082 (Version 1)
Quarter: 2025Q4

REPORT INFORMATION
  Report Type: Report from Study
  Country: EU (occurrence: EU)
  Receive Date: 20251107
  Receipt Date: 20251107
  Transmission Date: 20260118
  Serious: Yes (Other)
  Sender: ABBVIE
  Company Number: EU-ABBVIE-6505354

PATIENT
  Age: 74 Year
  Sex: Male

DRUGS (4)
  1. CARBIDOPA\LEVODOPA [Suspect]
     Active Substance: CARBIDOPA\LEVODOPA
     Indication: Parkinson^s disease
     Dosage: THERAPY END DATE: OCT 2025
     Route: 050
     Dates: start: 20251002
  2. CARBIDOPA\LEVODOPA [Suspect]
     Active Substance: CARBIDOPA\LEVODOPA
     Dosage: THERAPY START DATE: OCT 2025?DOSE INCREASE
     Route: 050
  3. AMOXICILLIN\CLAVULANIC ACID [Suspect]
     Active Substance: AMOXICILLIN\CLAVULANIC ACID
     Indication: Stoma site infection
     Dosage: DISCONTINUED IN OCT 2025
     Route: 048
     Dates: start: 20251010
  4. AMOXICILLIN\CLAVULANIC ACID [Suspect]
     Active Substance: AMOXICILLIN\CLAVULANIC ACID
     Indication: Stoma site infection
     Route: 048
     Dates: start: 202510

REACTIONS (5)
  - Aggression [Recovering/Resolving]
  - On and off phenomenon [Recovered/Resolved]
  - Stoma site infection [Recovering/Resolving]
  - Compulsions [Recovering/Resolving]
  - Delusion [Recovering/Resolving]

NARRATIVE: CASE EVENT DATE: 20251001
